FAERS Safety Report 5086619-6 (Version None)
Quarter: 2006Q3

REPORT INFORMATION
  Report Type: 
  Country: None (occurrence: None)
  Receive Date: 20060823
  Receipt Date: 20060705
  Transmission Date: 20061208
  Serious: Yes (Other)
  Sender: FDA-Public Use
  Company Number: PHEH2006US08627

PATIENT
  Age: 61 Year
  Sex: Female
  Weight: 76.19 kg

DRUGS (2)
  1. GLEEVEC [Suspect]
     Indication: CHRONIC MYELOID LEUKAEMIA
     Dosage: 400 MG, QD
     Route: 048
     Dates: start: 20040917
  2. ARIMIDEX [Concomitant]
     Indication: BREAST CANCER
     Dosage: 1 MG, QD
     Route: 048
     Dates: start: 20041101

REACTIONS (4)
  - BLOOD THYROID STIMULATING HORMONE DECREASED [None]
  - GOITRE [None]
  - IODINE UPTAKE INCREASED [None]
  - THYROXINE FREE INCREASED [None]
